FAERS Safety Report 9231066 (Version 3)
Quarter: 2013Q4

REPORT INFORMATION
  Report Type: Spontaneous
  Country: US (occurrence: None)
  Receive Date: 20121031
  Receipt Date: 20131226
  Transmission Date: 20140711
  Serious: Yes (Other)
  Sender: FDA-Public Use
  Company Number: PHEH2012US014608

PATIENT
  Age: 56 Year
  Sex: Female

DRUGS (13)
  1. GILENYA [Suspect]
     Indication: MULTIPLE SCLEROSIS
     Route: 048
     Dates: start: 201201
  2. NUVIGIL (ARMODAFINIL) [Suspect]
  3. FAMIPRIDINE (FAMPRIDINE) [Concomitant]
  4. ZOLOFT (SERTRALINE HYDROCHLORIDE) [Concomitant]
  5. LISINOPRIL (LISINOPRIL) [Concomitant]
  6. HYDROCHLOROTHIAZIDE (HYDROCHLORTHIAZIDE) [Concomitant]
  7. BACLOFEN (BACLOFEN) [Concomitant]
  8. MULTIVITAMINS (ASCORBIC ACID, ERGOCALCIFEROL, FOLIC ACID, NICOTINAMIDE, PANTHENOL, RETINOL, RIBOFLAVIN, THIAMINE HYDROCHLORIDE) [Concomitant]
  9. VITAMIN D (ERGOCALCIFEROL) [Concomitant]
  10. CALCIUM CITRATE (CALCIUM CITRATE) [Concomitant]
  11. MOBIC (MELOXICAM ) [Concomitant]
  12. ZANAFLEX (TIZANIDINE HYDROCHLORIDE) [Concomitant]
  13. CIPRO (CIPROFLOXACIN HYDROCHLORIDE) [Concomitant]

REACTIONS (5)
  - Muscular weakness [None]
  - Muscle spasms [None]
  - Dizziness [None]
  - Multiple sclerosis relapse [None]
  - Asthenia [None]
